FAERS Safety Report 8162506-1 (Version None)
Quarter: 2012Q1

REPORT INFORMATION
  Report Type: 
  Country: None (occurrence: None)
  Receive Date: 20120221
  Receipt Date: 20120214
  Transmission Date: 20120608
  Serious: Yes (Hospitalization, Other)
  Sender: FDA-Public Use
  Company Number: 2010SP002387

PATIENT
  Age: 82 Year
  Sex: Male
  Weight: 85 kg

DRUGS (25)
  1. PIOGLITAZONE [Concomitant]
  2. MESALAMINE [Concomitant]
  3. NALOXONE HCL [Concomitant]
  4. VICODIN [Concomitant]
  5. COUMARIN [Concomitant]
  6. FINASTERIDE [Concomitant]
  7. ACETAMINOPHEN [Concomitant]
  8. PLACEBO [Suspect]
     Indication: METASTATIC MALIGNANT MELANOMA
     Dosage: BID;PO
     Route: 048
     Dates: start: 20091116, end: 20091122
  9. FLUTICASONE PROPIONATE/SALMETEROL [Concomitant]
  10. ZOCOR [Concomitant]
  11. TEMOZOLOMIDE [Suspect]
     Indication: METASTATIC MALIGNANT MELANOMA
     Dosage: 150 MG/M2;PO
     Route: 048
     Dates: start: 20091116, end: 20091122
  12. DIPHENHYDRAMINE HCL [Concomitant]
  13. POTASSIUM CHLORIDE [Concomitant]
  14. CALCIUM CARBONATE [Concomitant]
  15. FLORASTAR [Concomitant]
  16. ERGOCALCIFEROL [Concomitant]
  17. ONDANSETRON [Concomitant]
  18. SIMVASTATIN [Concomitant]
  19. ALBUTEROL [Concomitant]
  20. QUETIAPINE FUMARATE [Concomitant]
  21. FILGRASTIM [Concomitant]
  22. LOMOTIL [Concomitant]
  23. PROCHLORPERAZINE EDISYLATE [Concomitant]
  24. COUMADIN [Concomitant]
  25. ZOLPIDEM TARTRATE [Concomitant]

REACTIONS (9)
  - SKIN CANCER [None]
  - INAPPROPRIATE ANTIDIURETIC HORMONE SECRETION [None]
  - SOMNOLENCE [None]
  - METASTASES TO LYMPH NODES [None]
  - ASTHENIA [None]
  - PANCYTOPENIA [None]
  - BLOOD SODIUM DECREASED [None]
  - DEHYDRATION [None]
  - AORTIC DISORDER [None]
